FAERS Safety Report 5711434-7 (Version None)
Quarter: 2008Q2

REPORT INFORMATION
  Report Type: 
  Country: None (occurrence: None)
  Receive Date: 20080418
  Receipt Date: 20080418
  Transmission Date: 20081010
  Serious: No
  Sender: FDA-Public Use
  Company Number: None

PATIENT
  Age: 31 Year
  Sex: Male
  Weight: 74.3899 kg

DRUGS (1)
  1. CHANTIX [Suspect]
     Indication: SMOKER
     Dosage: 0.5MG DAILY PO PRESCRIPTION WRITTEN 3/11/08
     Route: 048
     Dates: start: 20080311

REACTIONS (9)
  - ABNORMAL BEHAVIOUR [None]
  - AGGRESSION [None]
  - AGITATION [None]
  - ANGER [None]
  - BALANCE DISORDER [None]
  - HALLUCINATION [None]
  - IMPRISONMENT [None]
  - LOSS OF EMPLOYMENT [None]
  - SUICIDAL IDEATION [None]
